FAERS Safety Report 4766154-2 (Version None)
Quarter: 2005Q3

REPORT INFORMATION
  Report Type: 
  Country: None (occurrence: None)
  Receive Date: 20050909
  Receipt Date: 20050902
  Transmission Date: 20060218
  Serious: Yes (Life-Threatening)
  Sender: FDA-Public Use
  Company Number: LNL-100490-NL

PATIENT
  Age: 49 Year
  Sex: Female

DRUGS (7)
  1. ROCURONIUM BROMIDE [Suspect]
     Indication: MUSCLE RELAXANT THERAPY
     Dosage: 60 MG ONCE, INTRAVENOUS (NOS)
     Route: 042
     Dates: start: 19980709, end: 19980709
  2. PETHIDINE [Concomitant]
  3. DROPERIDOL [Concomitant]
  4. MIDAZOLAM [Concomitant]
  5. ONDANSETRON [Concomitant]
  6. PROPOFOL [Concomitant]
  7. ONDANSETRON HYDROCHLORIDE [Concomitant]

REACTIONS (7)
  - ANAPHYLACTIC SHOCK [None]
  - CYANOSIS [None]
  - ELECTROCARDIOGRAM ABNORMAL [None]
  - FLUSHING [None]
  - HEART SOUNDS ABNORMAL [None]
  - HYPOTENSION [None]
  - SKIN TEST POSITIVE [None]
